FAERS Safety Report 15145053 (Version 12)
Quarter: 2020Q3

REPORT INFORMATION
  Report Type: Report from Study
  Country: US (occurrence: US)
  Receive Date: 20180713
  Receipt Date: 20200803
  Transmission Date: 20201102
  Serious: Yes (Hospitalization)
  Sender: FDA-Public Use
  Company Number: US-ACTELION-A-US2018-175245

PATIENT
  Age: 48 Year
  Sex: Male
  Weight: 78.91 kg

DRUGS (7)
  1. VELETRI [Suspect]
     Active Substance: EPOPROSTENOL
     Indication: PULMONARY ARTERIAL HYPERTENSION
     Dosage: 40 NG/KG, PER MIN
     Route: 042
  2. VELETRI [Suspect]
     Active Substance: EPOPROSTENOL
     Dosage: 35 NG/KG, PER MIN
     Route: 042
  3. VELETRI [Suspect]
     Active Substance: EPOPROSTENOL
     Dosage: 8 NG/KG, PER MIN
     Route: 042
  4. SILDENAFIL CITRATE. [Concomitant]
     Active Substance: SILDENAFIL CITRATE
  5. OPSUMIT [Suspect]
     Active Substance: MACITENTAN
     Indication: PULMONARY ARTERIAL HYPERTENSION
     Dosage: 10 MG, QD
     Route: 048
  6. VELETRI [Suspect]
     Active Substance: EPOPROSTENOL
     Dosage: 12 NG/KG, PER MIN
     Route: 042
  7. ORENITRAM [Concomitant]
     Active Substance: TREPROSTINIL

REACTIONS (24)
  - Gastrointestinal disorder [Unknown]
  - Myalgia [Unknown]
  - Cyst removal [Unknown]
  - Flushing [Unknown]
  - Vascular device infection [Unknown]
  - Arthralgia [Unknown]
  - Headache [Unknown]
  - Fall [Recovered/Resolved]
  - Abdominal pain [Unknown]
  - Influenza like illness [Unknown]
  - Diarrhoea [Unknown]
  - Pneumonia [Unknown]
  - Cough [Unknown]
  - Memory impairment [Recovered/Resolved]
  - Catheter site erythema [Unknown]
  - Fatigue [Unknown]
  - Limb operation [Unknown]
  - Catheter site irritation [Unknown]
  - Catheter site pruritus [Unknown]
  - Product dose omission issue [Unknown]
  - Influenza [Unknown]
  - Catheter site pain [Unknown]
  - Joint injury [Recovered/Resolved]
  - Rash [Unknown]

NARRATIVE: CASE EVENT DATE: 20200206
